FAERS Safety Report 5976153-0 (Version None)
Quarter: 2008Q4

REPORT INFORMATION
  Report Type: 
  Country: None (occurrence: None)
  Receive Date: 20081202
  Receipt Date: 20080212
  Transmission Date: 20090506
  Serious: No
  Sender: FDA-Public Use
  Company Number: US-AMGEN-KDL262307

PATIENT
  Sex: Female
  Weight: 68.1 kg

DRUGS (5)
  1. ENBREL [Suspect]
     Indication: RHEUMATOID ARTHRITIS
     Route: 058
     Dates: start: 20060531
  2. PREDNISONE TAB [Concomitant]
     Dates: start: 20050901
  3. XANAX [Concomitant]
     Dates: start: 20050101
  4. PREVACID [Concomitant]
     Dates: start: 20060101
  5. OXYCODONE HCL [Concomitant]
     Dates: start: 20060101

REACTIONS (4)
  - INJECTION SITE ERYTHEMA [None]
  - INJECTION SITE IRRITATION [None]
  - INJECTION SITE PAIN [None]
  - RHEUMATOID ARTHRITIS [None]
